FAERS Safety Report 21503178 (Version 1)
Quarter: 2022Q4

REPORT INFORMATION
  Report Type: Spontaneous
  Country: US (occurrence: None)
  Receive Date: 20221024
  Receipt Date: 20221024
  Transmission Date: 20230112
  Serious: Yes (Hospitalization)
  Sender: FDA-Public Use
  Company Number: None

PATIENT
  Age: 16 Month
  Sex: Male
  Weight: 12.7 kg

DRUGS (1)
  1. KETAMINE [Suspect]
     Active Substance: KETAMINE
     Dates: start: 20220813, end: 20220813

REACTIONS (4)
  - Incorrect dose administered [None]
  - Device issue [None]
  - Product dose confusion [None]
  - Product supply issue [None]

NARRATIVE: CASE EVENT DATE: 20220813
